FAERS Safety Report 17534657 (Version 8)
Quarter: 2021Q1

REPORT INFORMATION
  Report Type: Spontaneous
  Country: US (occurrence: US)
  Receive Date: 20200312
  Receipt Date: 20210111
  Transmission Date: 20210419
  Serious: Yes (Other)
  Sender: FDA-Public Use
  Company Number: US-AKCEA THERAPEUTICS-2019IS001515

PATIENT
  Age: 79 Year
  Sex: Male

DRUGS (3)
  1. TEGSEDI [Suspect]
     Active Substance: INOTERSEN SODIUM
     Indication: HEREDITARY NEUROPATHIC AMYLOIDOSIS
     Route: 058
     Dates: start: 20190208
  2. ISSD (INTEGRATED SYRINGE SAFETY DEVICE) [Suspect]
     Active Substance: DEVICE
  3. TEGSEDI [Suspect]
     Active Substance: INOTERSEN SODIUM
     Route: 058

REACTIONS (11)
  - Crystal urine present [Unknown]
  - Urine analysis abnormal [Unknown]
  - Blood creatinine increased [Unknown]
  - Glomerular filtration rate decreased [Unknown]
  - Urine protein/creatinine ratio increased [Unknown]
  - Protein urine present [Unknown]
  - Urinary casts [Unknown]
  - Platelet count increased [Unknown]
  - Aspartate aminotransferase abnormal [Unknown]
  - Urine abnormality [Unknown]
  - Bacterial test positive [Unknown]

NARRATIVE: CASE EVENT DATE: 20190417
